FAERS Safety Report 10456061 (Version 3)
Quarter: 2015Q1

REPORT INFORMATION
  Report Type: Spontaneous
  Country: DK (occurrence: DK)
  Receive Date: 20140916
  Receipt Date: 20150130
  Transmission Date: 20150720
  Serious: Yes (Hospitalization)
  Sender: FDA-Public Use
  Company Number: DK-NAPPMUNDI-GBR-2014-0021022

PATIENT
  Age: 63 Year

DRUGS (12)
  1. TARGIN PR TABLET [Suspect]
     Active Substance: NALOXONE HYDROCHLORIDE\OXYCODONE HYDROCHLORIDE
     Dosage: 50 MG, QID
     Route: 048
     Dates: start: 20090913
  2. LANZO [Concomitant]
     Dosage: 30 MG, DAILY
  3. TARGIN PR TABLET [Suspect]
     Active Substance: NALOXONE HYDROCHLORIDE\OXYCODONE HYDROCHLORIDE
     Indication: PAIN
     Dosage: 50 MG, QID
     Route: 048
     Dates: end: 20120918
  4. CLONOCID [Concomitant]
     Dosage: 25 MG, TID
  5. RAMIPRIL. [Concomitant]
     Active Substance: RAMIPRIL
     Dosage: 2.5 MG, DAILY
  6. OXYCODONE HYDROCHLORIDE. [Concomitant]
     Active Substance: OXYCODONE HYDROCHLORIDE
     Dosage: UNK
     Route: 048
  7. LYRICA [Concomitant]
     Active Substance: PREGABALIN
     Dosage: 150 MG, BID
  8. PICOLON [Concomitant]
     Dosage: 10 UNK, UNK
     Route: 042
  9. CYMBALTA [Concomitant]
     Active Substance: DULOXETINE HYDROCHLORIDE
     Dosage: 60 MG, DAILY
  10. SIMVASTATIN. [Concomitant]
     Active Substance: SIMVASTATIN
     Dosage: 60 MG, DAILY
  11. NOVORAPID [Concomitant]
     Active Substance: INSULIN ASPART
     Dosage: 100IE/ML 10+10+10
  12. INSULATARD                         /00646002/ [Concomitant]
     Active Substance: INSULIN NOS
     Dosage: 100 IE/ML 0+0+14

REACTIONS (3)
  - Angina pectoris [Unknown]
  - Angina pectoris [Unknown]
  - Angina pectoris [Unknown]

NARRATIVE: CASE EVENT DATE: 2010
